FAERS Safety Report 10061963 (Version 1)
Quarter: 2014Q2

REPORT INFORMATION
  Report Type: Spontaneous
  Country: GB (occurrence: GB)
  Receive Date: 20140407
  Receipt Date: 20140407
  Transmission Date: 20141212
  Serious: Yes (Other)
  Sender: FDA-Public Use
  Company Number: GB-TEVA-471799ISR

PATIENT
  Age: 30 Year
  Sex: Female
  Weight: 64.86 kg

DRUGS (3)
  1. ERYTHROMYCIN [Suspect]
     Indication: PERTUSSIS
     Dosage: 8 DOSAGE FORMS DAILY;
     Route: 048
  2. MICROGYNON [Concomitant]
  3. THYROXINE [Concomitant]

REACTIONS (3)
  - Malaise [Recovered/Resolved]
  - Abdominal pain upper [Recovered/Resolved]
  - Pyrexia [Recovered/Resolved]
